FAERS Safety Report 26058583 (Version 1)
Quarter: 2025Q4

REPORT INFORMATION
  Report Type: Spontaneous
  Country: VN (occurrence: VN)
  Receive Date: 20251118
  Receipt Date: 20251118
  Transmission Date: 20260118
  Serious: Yes (Life-Threatening, Hospitalization)
  Sender: GE HEALTHCARE
  Company Number: VN-GE HEALTHCARE-2025CSU015782

PATIENT
  Age: 20 Year
  Sex: Male
  Weight: 60 kg

DRUGS (1)
  1. OMNIPAQUE [Suspect]
     Active Substance: IOHEXOL
     Indication: Spinal myelogram
     Dosage: 5 ML, TOTAL
     Route: 037

REACTIONS (2)
  - Acid-base balance disorder mixed [Recovered/Resolved]
  - Anaphylactic reaction [Recovered/Resolved]
